FAERS Safety Report 25265453 (Version 1)
Quarter: 2025Q2

REPORT INFORMATION
  Report Type: Spontaneous
  Country: US (occurrence: US)
  Receive Date: 20250502
  Receipt Date: 20250502
  Transmission Date: 20250716
  Serious: Yes (Hospitalization)
  Sender: TONIX PHARMACEUTICALS
  Company Number: US-TONIX MEDICINES, INC.-2025TNX00016

PATIENT
  Age: 65 Year
  Sex: Female

DRUGS (5)
  1. ZEMBRACE SYMTOUCH [Suspect]
     Active Substance: SUMATRIPTAN SUCCINATE
     Indication: Migraine
     Route: 058
     Dates: start: 20230424
  2. METOPROLOL SUCCINATE [Concomitant]
     Active Substance: METOPROLOL SUCCINATE
  3. ZOFRAN [Concomitant]
     Active Substance: ONDANSETRON HYDROCHLORIDE
  4. EMGALITY [Concomitant]
     Active Substance: GALCANEZUMAB-GNLM
  5. THYROID (PORK) [Concomitant]

REACTIONS (2)
  - Pneumonia [Unknown]
  - Cardiomyopathy [Unknown]

NARRATIVE: CASE EVENT DATE: 20250101
